FAERS Safety Report 8883913 (Version 1)
Quarter: 2012Q4

REPORT INFORMATION
  Report Type: Report from Study
  Country: DE (occurrence: DE)
  Receive Date: 20121102
  Receipt Date: 20121102
  Transmission Date: 20130627
  Serious: Yes (Hospitalization, Other)
  Sender: FDA-Public Use
  Company Number: DE-ABBOTT-12P-062-1000117-00

PATIENT
  Age: 68 Year
  Sex: Female
  Weight: 64 kg

DRUGS (11)
  1. ZEMPLAR [Suspect]
     Indication: HYPERPARATHYROIDISM SECONDARY
     Dosage: 2 ?g after every dialysis
  2. PHENPROCOUMON [Concomitant]
     Indication: THROMBOSIS PROPHYLAXIS
     Dosage: unk
  3. METOPROLOL [Concomitant]
     Indication: PRODUCT USED FOR UNKNOWN INDICATION
  4. CLONIDIN RETARD 250 [Concomitant]
     Indication: PRODUCT USED FOR UNKNOWN INDICATION
  5. SEVIKAR HCT [Concomitant]
     Indication: PRODUCT USED FOR UNKNOWN INDICATION
     Dosage: 40/10/12.5
  6. DIGITOXIN [Concomitant]
     Indication: PRODUCT USED FOR UNKNOWN INDICATION
  7. NEPRESOL [Concomitant]
     Indication: PRODUCT USED FOR UNKNOWN INDICATION
  8. BONDIOL [Concomitant]
     Indication: PRODUCT USED FOR UNKNOWN INDICATION
     Dosage: 0.5 ?g at the day of dialysis
  9. CINACALCET [Concomitant]
     Indication: PRODUCT USED FOR UNKNOWN INDICATION
  10. RETACRIT [Concomitant]
     Indication: PRODUCT USED FOR UNKNOWN INDICATION
     Dosage: 3 x 8000 IU per week
  11. FERRLECIT [Concomitant]
     Indication: PRODUCT USED FOR UNKNOWN INDICATION
     Dosage: 62.5 mg per week

REACTIONS (5)
  - Dyspnoea exertional [Not Recovered/Not Resolved]
  - Aortic valve stenosis [Unknown]
  - Aortic valve incompetence [Unknown]
  - Mitral valve incompetence [Unknown]
  - Angina pectoris [Unknown]
